FAERS Safety Report 4375674-4 (Version None)
Quarter: 2004Q2

REPORT INFORMATION
  Report Type: 
  Country: None (occurrence: None)
  Receive Date: 20040607
  Receipt Date: 20040602
  Transmission Date: 20050107
  Serious: Yes (Disabling, Other)
  Sender: FDA-Public Use
  Company Number: US-JNJFOC-20040401261

PATIENT
  Age: 52 Year
  Sex: Female
  Weight: 72.5755 kg

DRUGS (7)
  1. TOPAMAX [Suspect]
     Indication: BACK PAIN
     Dosage: 25 MG,  IN 1 DAY, ORAL
     Route: 048
  2. TENORMIN [Concomitant]
  3. LANOXIN [Concomitant]
  4. ASPIRIN [Concomitant]
  5. PREMPRO 14/14 [Concomitant]
  6. NORCO (VICODIN) [Concomitant]
  7. MS CONTIN [Concomitant]

REACTIONS (6)
  - ANGLE CLOSURE GLAUCOMA [None]
  - BLINDNESS [None]
  - CORNEAL DISORDER [None]
  - HEADACHE [None]
  - PUPILLARY DISORDER [None]
  - VOMITING [None]
